FAERS Safety Report 10683134 (Version 2)
Quarter: 2014Q4

REPORT INFORMATION
  Report Type: Spontaneous
  Country: IL (occurrence: IL)
  Receive Date: 20141230
  Receipt Date: 20141230
  Transmission Date: 20150529
  Serious: Yes (Other)
  Sender: FDA-Public Use
  Company Number: IL-BAYER-2014-178194

PATIENT
  Age: 50 Year
  Sex: Female

DRUGS (3)
  1. ANGELIQ [Suspect]
     Active Substance: DROSPIRENONE\ESTRADIOL
     Indication: MENOMETRORRHAGIA
     Dosage: UNK
     Dates: start: 20140123, end: 20141201
  2. MIRENA [Suspect]
     Active Substance: LEVONORGESTREL
     Dosage: UNK
  3. ANGELIQ [Suspect]
     Active Substance: DROSPIRENONE\ESTRADIOL
     Indication: MENORRHAGIA

REACTIONS (5)
  - Blood glucose increased [None]
  - Low density lipoprotein increased [None]
  - Vaginal haemorrhage [Recovered/Resolved]
  - Blood triglycerides increased [None]
  - Blood cholesterol increased [None]

NARRATIVE: CASE EVENT DATE: 2014
